FAERS Safety Report 23068574 (Version 2)
Quarter: 2023Q4

REPORT INFORMATION
  Report Type: Spontaneous
  Country: RO (occurrence: RO)
  Receive Date: 20231016
  Receipt Date: 20231030
  Transmission Date: 20240110
  Serious: Yes (Other)
  Sender: FDA-Public Use
  Company Number: None

PATIENT
  Age: 63 Year
  Sex: Male

DRUGS (2)
  1. CAPECITABINE [Suspect]
     Active Substance: CAPECITABINE
     Indication: Adenocarcinoma of colon
     Dosage: 500MG X 7PILLS/DAY FOR 14 DAYS
     Route: 048
  2. CAPECITABINE [Suspect]
     Active Substance: CAPECITABINE
     Indication: Rectal adenocarcinoma

REACTIONS (4)
  - Cardiotoxicity [Recovered/Resolved]
  - Arteriospasm coronary [Recovered/Resolved]
  - Myocardial ischaemia [Recovered/Resolved]
  - Chest pain [Recovered/Resolved]
